FAERS Safety Report 22041506 (Version 2)
Quarter: 2023Q4

REPORT INFORMATION
  Report Type: Report from Study
  Country: US (occurrence: US)
  Receive Date: 20230227
  Receipt Date: 20231128
  Transmission Date: 20240110
  Serious: Yes (Other)
  Sender: FDA-Public Use
  Company Number: US-ABBVIE-4254055

PATIENT
  Sex: Female

DRUGS (2)
  1. HUMIRA [Suspect]
     Active Substance: ADALIMUMAB
     Indication: Hidradenitis
     Route: 058
     Dates: start: 20200501
  2. HUMIRA [Suspect]
     Active Substance: ADALIMUMAB
     Indication: Psoriatic arthropathy

REACTIONS (8)
  - Foot deformity [Recovering/Resolving]
  - Pain in extremity [Not Recovered/Not Resolved]
  - Joint surgery [Unknown]
  - Peripheral swelling [Recovering/Resolving]
  - Psoriasis [Unknown]
  - Osteoporosis [Unknown]
  - Drug ineffective [Unknown]
  - Arthritis [Recovering/Resolving]

NARRATIVE: CASE EVENT DATE: 20220101
